FAERS Safety Report 16119040 (Version 4)
Quarter: 2019Q2

REPORT INFORMATION
  Report Type: Spontaneous
  Country: BR (occurrence: BR)
  Receive Date: 20190326
  Receipt Date: 20190515
  Transmission Date: 20190711
  Serious: Yes (Other)
  Sender: FDA-Public Use
  Company Number: BR-PFIZER INC-2019124368

PATIENT
  Age: 86 Year
  Sex: Male

DRUGS (3)
  1. ELIFORE [Suspect]
     Active Substance: DESVENLAFAXINE SUCCINATE
     Indication: NERVOUSNESS
  2. ELIFORE [Suspect]
     Active Substance: DESVENLAFAXINE SUCCINATE
     Indication: DEPRESSION
     Dosage: 50 MG, 1X/DAY (1 TABLET IN THE MORNING AFTER BREAKFAST)
     Dates: start: 20190106
  3. FRONTAL [Concomitant]
     Active Substance: ALPRAZOLAM
     Dosage: UNK

REACTIONS (4)
  - Product residue present [Not Recovered/Not Resolved]
  - Abdominal pain [Recovered/Resolved]
  - Dysentery [Recovered/Resolved]
  - Drug ineffective [Unknown]

NARRATIVE: CASE EVENT DATE: 20190320
